FAERS Safety Report 6243406-0 (Version None)
Quarter: 2009Q2

REPORT INFORMATION
  Report Type: 
  Country: None (occurrence: None)
  Receive Date: 20090622
  Receipt Date: 20090622
  Transmission Date: 20091009
  Serious: Yes (Disabling, Other)
  Sender: FDA-Public Use
  Company Number: None

PATIENT
  Age: 51 Year
  Sex: Female
  Weight: 64.8644 kg

DRUGS (2)
  1. ZICAM COLD REMEDY NONE LISTED ZICAM LLC/SCOTTSDALE, AR; MATRIXX INITIA [Suspect]
     Indication: NASOPHARYNGITIS
     Dosage: 1 GEL SWAB EVERY 4 HOURS NASAL
     Route: 045
     Dates: start: 20090301, end: 20090305
  2. ZICAM COLD REMEDY NONE LISTED ZICAM LLC/SCOTTSDALE, AR; MATRIXX INITIA [Suspect]
     Indication: NASOPHARYNGITIS
     Dosage: 1 GEL SWAB EVERY 4 HOURS NASAL
     Route: 045
     Dates: start: 20090305, end: 20090513

REACTIONS (2)
  - AGEUSIA [None]
  - ANOSMIA [None]
